FAERS Safety Report 20708927 (Version 3)
Quarter: 2022Q2

REPORT INFORMATION
  Report Type: Report from Study
  Country: DE (occurrence: None)
  Receive Date: 20220414
  Receipt Date: 20220511
  Transmission Date: 20220720
  Serious: Yes (Hospitalization)
  Sender: FDA-Public Use
  Company Number: DE-ROCHE-3062182

PATIENT
  Age: 35 Year
  Sex: Male
  Weight: 84 kg

DRUGS (15)
  1. GLOFITAMAB [Suspect]
     Active Substance: GLOFITAMAB
     Indication: Diffuse large B-cell lymphoma
     Dosage: DOSE LAST GLOFITAMAB ADMINISTRATION PRIOR ADVERSE EVENT (AE) 30 MG?DOSE LAST GLOFITAMAB ADMINISTRATI
     Route: 042
     Dates: start: 20211103
  2. RITUXIMAB [Suspect]
     Active Substance: RITUXIMAB
     Indication: Diffuse large B-cell lymphoma
     Dosage: DOSE OF RITUXIMAB FIRST ADMINISTERED 375 MG/M2?DOSE LAST RITUXIMAB ADMINISTERED PRIOR ADVERSE EVENT
     Route: 041
     Dates: start: 20211005
  3. CYCLOPHOSPHAMIDE [Suspect]
     Active Substance: CYCLOPHOSPHAMIDE
     Indication: Diffuse large B-cell lymphoma
     Dosage: DOSE OF CYCLOPHOSPHAMIDE FIRST ADMINISTERED 750 MG/M2?DOSE LAST CYCLOPHOSPHAMIDE ADMINISTERED PRIOR
     Route: 042
     Dates: start: 20211005
  4. DOXORUBICIN [Suspect]
     Active Substance: DOXORUBICIN
     Indication: Diffuse large B-cell lymphoma
     Dosage: DOSE LAST DOXORUBICIN ADMINISTERED PRIOR ADVERSE EVENT (AE) 50 MG/M2?DOSE LAST DOXORUBICIN ADMINISTE
     Route: 042
     Dates: start: 20211005
  5. VINCRISTINE [Suspect]
     Active Substance: VINCRISTINE
     Indication: Diffuse large B-cell lymphoma
     Dosage: DOSE LAST VINCRISTINE ADMINISTERED PRIOR ADVERSE EVENT (AE) 2 MG/M2?DOSE LAST VINCRISTINE ADMINISTER
     Route: 042
     Dates: start: 20211005
  6. PREDNISOLONE [Suspect]
     Active Substance: PREDNISOLONE
     Indication: Diffuse large B-cell lymphoma
     Dosage: DOSE LAST PREDNISOLONE ADMINISTERED PRIOR ADVERSE EVENT (AE) 100 MG ?DOSE LAST PREDNISOLONE ADMINIST
     Route: 048
     Dates: start: 20211005
  7. ACETAMINOPHEN [Concomitant]
     Active Substance: ACETAMINOPHEN
     Indication: Premedication
     Route: 048
     Dates: start: 20211027
  8. ACETAMINOPHEN [Concomitant]
     Active Substance: ACETAMINOPHEN
     Route: 048
     Dates: start: 20211116
  9. ACETAMINOPHEN [Concomitant]
     Active Substance: ACETAMINOPHEN
     Route: 048
     Dates: start: 20211209
  10. ACETAMINOPHEN [Concomitant]
     Active Substance: ACETAMINOPHEN
     Route: 048
     Dates: start: 20211230
  11. ACETAMINOPHEN [Concomitant]
     Active Substance: ACETAMINOPHEN
     Route: 048
     Dates: start: 20211216
  12. ACETAMINOPHEN [Concomitant]
     Active Substance: ACETAMINOPHEN
     Route: 048
     Dates: start: 20220126
  13. ALLOPURINOL [Concomitant]
     Active Substance: ALLOPURINOL
     Indication: Prophylaxis
     Dates: start: 20211002
  14. ACYCLOVIR [Concomitant]
     Active Substance: ACYCLOVIR
     Indication: Prophylaxis
     Dates: start: 20211005
  15. PANTOPRAZOLE [Concomitant]
     Active Substance: PANTOPRAZOLE
     Indication: Prophylaxis
     Dates: start: 20211005

REACTIONS (1)
  - COVID-19 pneumonia [Recovered/Resolved]

NARRATIVE: CASE EVENT DATE: 20220323
